FAERS Safety Report 14914028 (Version 2)
Quarter: 2018Q2

REPORT INFORMATION
  Report Type: Report from Study
  Country: US (occurrence: US)
  Receive Date: 20180518
  Receipt Date: 20180521
  Transmission Date: 20180711
  Serious: Yes (Hospitalization)
  Sender: FDA-Public Use
  Company Number: US-JNJFOC-20180523002

PATIENT
  Age: 15 Year
  Sex: Male
  Weight: 46.4 kg

DRUGS (1)
  1. REMICADE [Suspect]
     Active Substance: INFLIXIMAB
     Indication: INFLAMMATORY BOWEL DISEASE
     Route: 042
     Dates: start: 20140904, end: 20180326

REACTIONS (1)
  - Ileal stenosis [Recovered/Resolved]

NARRATIVE: CASE EVENT DATE: 20180111
